FAERS Safety Report 14244272 (Version 1)
Quarter: 2017Q4

REPORT INFORMATION
  Report Type: Spontaneous
  Country: US (occurrence: US)
  Receive Date: 20171201
  Receipt Date: 20171201
  Transmission Date: 20180321
  Serious: Yes (Other)
  Sender: FDA-Public Use
  Company Number: US-PFIZER INC-2017496628

PATIENT
  Age: 13 Year
  Sex: Female
  Weight: 37.19 kg

DRUGS (8)
  1. GENOTROPIN [Suspect]
     Active Substance: SOMATROPIN
     Indication: GROWTH HORMONE DEFICIENCY
     Dosage: 1.2 MG, 1X/DAY
  2. ZOLOFT [Concomitant]
     Active Substance: SERTRALINE HYDROCHLORIDE
     Indication: ATTENTION DEFICIT/HYPERACTIVITY DISORDER
     Dosage: 25 MG, 1X/DAY IN THE MORNING
  3. FELBAMATE. [Concomitant]
     Active Substance: FELBAMATE
     Indication: SEIZURE
     Dosage: 600 MG, 2X/DAY (MORNING AND EVENING)
  4. GENOTROPIN [Suspect]
     Active Substance: SOMATROPIN
     Dosage: 1.4 ML, DAILY
  5. FELBAMATE. [Concomitant]
     Active Substance: FELBAMATE
     Dosage: 400 MG, 1X/DAY (NOON)
  6. ABILIFY [Concomitant]
     Active Substance: ARIPIPRAZOLE
     Indication: ATTENTION DEFICIT/HYPERACTIVITY DISORDER
     Dosage: 10 MG, 1X/DAY IN THE MORNING
  7. CYPROHEPTADINE. [Concomitant]
     Active Substance: CYPROHEPTADINE
     Indication: SLEEP DISORDER
     Dosage: 3 MG, 1X/DAY AT BEDTIME
  8. MELATONIN [Concomitant]
     Active Substance: MELATONIN
     Indication: SLEEP DISORDER
     Dosage: 3 MG, 1X/DAY AT BEDTIME

REACTIONS (5)
  - Drug dose omission [Not Recovered/Not Resolved]
  - Device issue [Unknown]
  - Fall [Unknown]
  - Pneumonia [Recovering/Resolving]
  - Ligament sprain [Not Recovered/Not Resolved]

NARRATIVE: CASE EVENT DATE: 20171113
